FAERS Safety Report 4934053-9 (Version None)
Quarter: 2006Q1

REPORT INFORMATION
  Report Type: 
  Country: None (occurrence: None)
  Receive Date: 20060303
  Receipt Date: 20060218
  Transmission Date: 20060701
  Serious: Yes (Other)
  Sender: FDA-Public Use
  Company Number: 2006024253

PATIENT
  Age: 16 Year
  Sex: Male

DRUGS (2)
  1. DRAMAMINE [Suspect]
     Indication: OVERDOSE
     Dosage: AT LEAST 12 TABLETS ONCE, ORAL
     Route: 048
     Dates: start: 20060218, end: 20060218
  2. DRAMAMINE [Suspect]

REACTIONS (3)
  - ABNORMAL BEHAVIOUR [None]
  - DISORIENTATION [None]
  - INCORRECT DOSE ADMINISTERED [None]
